FAERS Safety Report 20114318 (Version 2)
Quarter: 2022Q1

REPORT INFORMATION
  Report Type: Spontaneous
  Country: US (occurrence: US)
  Receive Date: 20211125
  Receipt Date: 20220304
  Transmission Date: 20220423
  Serious: No
  Sender: FDA-Public Use
  Company Number: US-PFIZER INC-202101589873

PATIENT
  Age: 68 Year
  Sex: Male
  Weight: 129.2 kg

DRUGS (1)
  1. LYRICA [Suspect]
     Active Substance: PREGABALIN
     Dosage: UNK

REACTIONS (3)
  - Drug hypersensitivity [Unknown]
  - Headache [Unknown]
  - Anger [Unknown]
